FAERS Safety Report 13169746 (Version 1)
Quarter: 2017Q1

REPORT INFORMATION
  Report Type: Spontaneous
  Country: US (occurrence: US)
  Receive Date: 20170131
  Receipt Date: 20170131
  Transmission Date: 20170428
  Serious: No
  Sender: FDA-Public Use
  Company Number: US-ABBVIE-16K-163-1536929-00

PATIENT
  Sex: Male
  Weight: 128.48 kg

DRUGS (4)
  1. ENBREL [Suspect]
     Active Substance: ETANERCEPT
     Indication: PRODUCT USED FOR UNKNOWN INDICATION
     Route: 065
  2. METHOTREXATE. [Suspect]
     Active Substance: METHOTREXATE
     Indication: PRODUCT USED FOR UNKNOWN INDICATION
     Route: 065
  3. COSENTYX [Suspect]
     Active Substance: SECUKINUMAB
     Indication: PRODUCT USED FOR UNKNOWN INDICATION
     Route: 065
     Dates: start: 20151001
  4. HUMIRA [Suspect]
     Active Substance: ADALIMUMAB
     Indication: PRODUCT USED FOR UNKNOWN INDICATION
     Route: 058

REACTIONS (11)
  - Drug ineffective [Unknown]
  - Psoriatic arthropathy [Unknown]
  - Skin exfoliation [Unknown]
  - Asthenia [Unknown]
  - Psoriasis [Unknown]
  - Fatigue [Unknown]
  - Dry skin [Unknown]
  - Anaemia [Unknown]
  - T-lymphocyte count decreased [Unknown]
  - Hangover [Unknown]
  - Joint stiffness [Unknown]
